FAERS Safety Report 10145464 (Version 1)
Quarter: 2014Q2

REPORT INFORMATION
  Report Type: Spontaneous
  Country: ES (occurrence: ES)
  Receive Date: 20140501
  Receipt Date: 20140501
  Transmission Date: 20141212
  Serious: Yes (Hospitalization, Other)
  Sender: FDA-Public Use
  Company Number: ES-MERCK-1404ESP013083

PATIENT
  Age: 69 Year
  Sex: Female

DRUGS (3)
  1. PEGINTRON [Suspect]
     Indication: HEPATITIS C
     Dosage: UNK, QW
     Route: 058
     Dates: start: 20130520, end: 201401
  2. TELAPREVIR [Suspect]
     Indication: HEPATITIS C
     Dosage: UNK
     Route: 048
     Dates: start: 20130520, end: 201307
  3. RIBAVIRIN [Suspect]
     Indication: HEPATITIS C
     Dosage: 800 MG DAILY
     Route: 048
     Dates: start: 20130520, end: 201401

REACTIONS (19)
  - Pyelonephritis acute [Recovered/Resolved]
  - Anaemia [Unknown]
  - Transfusion [Unknown]
  - Anal abscess [Recovered/Resolved]
  - Surgery [Recovered/Resolved]
  - Anal fistula [Unknown]
  - Abscess drainage [Recovered/Resolved]
  - Rash [Recovering/Resolving]
  - Rash [Unknown]
  - Pruritus [Recovering/Resolving]
  - Somnolence [Unknown]
  - Dizziness [Unknown]
  - Asthenia [Unknown]
  - Neutropenia [Unknown]
  - Malaise [Recovered/Resolved]
  - Leukopenia [Not Recovered/Not Resolved]
  - Decreased appetite [Recovered/Resolved]
  - Hypotension [Recovered/Resolved]
  - Haemorrhoids [Unknown]
